FAERS Safety Report 9710812 (Version 1)
Quarter: 2013Q4

REPORT INFORMATION
  Report Type: Spontaneous
  Country: US (occurrence: None)
  Receive Date: 20131125
  Receipt Date: 20131125
  Transmission Date: 20140711
  Serious: No
  Sender: FDA-Public Use
  Company Number: None

PATIENT
  Age: 64 Year
  Sex: Female
  Weight: 74.84 kg

DRUGS (1)
  1. ASTHMANEFRIN EZ BREATHE ATOMIZER [Suspect]
     Indication: ASTHMA
     Dosage: INHALED THREE TIMES DAILY MOUTH INHALED
     Route: 055
     Dates: start: 20131123

REACTIONS (1)
  - Haemoptysis [None]
